FAERS Safety Report 25210774 (Version 1)
Quarter: 2025Q2

REPORT INFORMATION
  Report Type: Spontaneous
  Country: US (occurrence: US)
  Receive Date: 20250417
  Receipt Date: 20250417
  Transmission Date: 20250716
  Serious: Yes (Other)
  Sender: MALLINCKRODT
  Company Number: US-MALLINCKRODT-MNK202502097

PATIENT
  Age: 66 Year
  Sex: Female

DRUGS (7)
  1. CORTICOTROPIN [Suspect]
     Active Substance: CORTICOTROPIN
     Indication: Multiple sclerosis
     Route: 030
     Dates: start: 20180928
  2. ADVIL [Concomitant]
     Active Substance: IBUPROFEN
  3. ALPHA LIPOIC ACID [Concomitant]
     Active Substance: .ALPHA.-LIPOIC ACID
  4. BIOTIN [Concomitant]
     Active Substance: BIOTIN
  5. TECFIDERA [Concomitant]
     Active Substance: DIMETHYL FUMARATE
  6. TYLENOL [Concomitant]
     Active Substance: ACETAMINOPHEN
  7. VITAMIN D3 [Concomitant]
     Active Substance: CHOLECALCIFEROL

REACTIONS (2)
  - Multiple sclerosis relapse [Not Recovered/Not Resolved]
  - Disease progression [Not Recovered/Not Resolved]

NARRATIVE: CASE EVENT DATE: 20250401
